FAERS Safety Report 8581410-8 (Version None)
Quarter: 2012Q3

REPORT INFORMATION
  Report Type: 
  Country: None (occurrence: None)
  Receive Date: 20120809
  Receipt Date: 20120731
  Transmission Date: 20120928
  Serious: Yes (Other)
  Sender: FDA-Public Use
  Company Number: JP-ASTRAZENECA-2012SE48491

PATIENT
  Age: 80 Year
  Sex: Female
  Weight: 146 kg

DRUGS (6)
  1. ONEALFA [Concomitant]
     Route: 048
  2. PRAVASTATIN [Concomitant]
     Route: 048
  3. NEXIUM [Suspect]
     Indication: GASTROOESOPHAGEAL REFLUX DISEASE
     Route: 048
     Dates: start: 20120301, end: 20120614
  4. RISEDRONATE SODIUM [Concomitant]
     Route: 048
  5. BIO-THREE [Concomitant]
     Route: 048
  6. RIZE [Concomitant]
     Route: 048

REACTIONS (4)
  - DECREASED APPETITE [None]
  - DIARRHOEA [None]
  - PRURITUS [None]
  - HEPATIC ENZYME INCREASED [None]
